FAERS Safety Report 5255838-8 (Version None)
Quarter: 2007Q1

REPORT INFORMATION
  Report Type: 
  Country: None (occurrence: None)
  Receive Date: 20070301
  Receipt Date: 20070216
  Transmission Date: 20070707
  Serious: Yes (Death)
  Sender: FDA-Public Use
  Company Number: 2007AL000682

PATIENT
  Age: 26 Year

DRUGS (3)
  1. DIAZEPAM [Suspect]
  2. METHADONE HCL [Concomitant]
  3. DURAGESIC-100 [Concomitant]

REACTIONS (1)
  - INTENTIONAL DRUG MISUSE [None]
